FAERS Safety Report 8832087 (Version 1)
Quarter: 2012Q4

REPORT INFORMATION
  Report Type: 
  Country: US (occurrence: US)
  Receive Date: 20121009
  Receipt Date: 20121009
  Transmission Date: 20130627
  Serious: Yes (Other)
  Sender: FDA-Public Use
  Company Number: US-PFIZER INC-2012245119

PATIENT

DRUGS (1)
  1. PREMPRO [Suspect]
     Dosage: UNK, 0.625 mg/2.5 mg, 1x28

REACTIONS (1)
  - Deep vein thrombosis [Unknown]
